FAERS Safety Report 8407459-3 (Version None)
Quarter: 2012Q2

REPORT INFORMATION
  Report Type: 
  Country: None (occurrence: None)
  Receive Date: 20120529
  Receipt Date: 20120514
  Transmission Date: 20120825
  Serious: Yes (Other)
  Sender: FDA-Public Use
  Company Number: AUR-APL-2012-02338

PATIENT
  Age: 15 Year
  Sex: Female

DRUGS (4)
  1. ACETYLSALICYLIC ACID (ACETYSALICYLIC ACID) [Concomitant]
  2. PREDNISOLONE [Concomitant]
  3. MYCOPHENOLATE MOFETIL [Concomitant]
  4. AMOXICILLIN AND CLAVULANATE POTASSIUM [Suspect]
     Indication: GROIN ABSCESS
     Dosage: ORAL
     Route: 048

REACTIONS (4)
  - HEPATOTOXICITY [None]
  - CHOLANGITIS SCLEROSING [None]
  - GENERAL PHYSICAL HEALTH DETERIORATION [None]
  - HEPATITIS CHOLESTATIC [None]
